FAERS Safety Report 8218164-0 (Version None)
Quarter: 2012Q1

REPORT INFORMATION
  Report Type: 
  Country: None (occurrence: None)
  Receive Date: 20120319
  Receipt Date: 20120314
  Transmission Date: 20120608
  Serious: Yes (Other)
  Sender: FDA-Public Use
  Company Number: US-FRI-1000029085

PATIENT
  Age: 64 Year
  Sex: Female

DRUGS (11)
  1. VIIBRYD [Suspect]
     Indication: DEPRESSION
     Dosage: 10 MG
     Route: 048
     Dates: start: 20120206, end: 20120212
  2. VIIBRYD [Suspect]
     Dosage: 40 MG
     Route: 048
     Dates: start: 20120220, end: 20120313
  3. VIIBRYD [Suspect]
     Dosage: 20 MG
     Route: 048
     Dates: start: 20120213, end: 20120219
  4. LORCET-HD [Concomitant]
     Indication: BACK PAIN
  5. LOPRESSOR [Concomitant]
     Indication: HYPERTENSION
  6. SAVELLA [Concomitant]
     Indication: FIBROMYALGIA
  7. ZOCOR [Concomitant]
     Indication: BLOOD CHOLESTEROL INCREASED
  8. LEVOTHYROXINE SODIUM [Concomitant]
     Indication: HYPOTHYROIDISM
  9. SKELAXIN [Concomitant]
     Indication: BACK PAIN
  10. GLUCOPHAGE [Concomitant]
     Indication: DIABETES MELLITUS
  11. XANAX [Concomitant]
     Indication: ANXIETY

REACTIONS (3)
  - EMOTIONAL DISORDER [None]
  - AGITATION [None]
  - HOMICIDAL IDEATION [None]
